FAERS Safety Report 9114050 (Version 1)
Quarter: 2013Q1

REPORT INFORMATION
  Report Type: Spontaneous
  Country: IT (occurrence: IT)
  Receive Date: 20130208
  Receipt Date: 20130208
  Transmission Date: 20140127
  Serious: Yes (Hospitalization)
  Sender: FDA-Public Use
  Company Number: IT-PFIZER INC-2013019121

PATIENT
  Age: 36 Year
  Sex: Female

DRUGS (3)
  1. XANAX [Suspect]
     Indication: ANXIETY
     Dosage: 0.5MG; 17 DOSAGE UNITS
     Route: 048
     Dates: start: 20130102, end: 20130102
  2. LAMOTRIGINE [Concomitant]
     Indication: BIPOLAR DISORDER
     Dosage: 1 DOSAGE UNIT
     Route: 048
  3. RIVOTRIL [Concomitant]
     Indication: ANXIETY
     Dosage: 30 DROPS
     Route: 048
     Dates: start: 20130102, end: 20130102

REACTIONS (2)
  - Incorrect dose administered [Unknown]
  - Psychomotor hyperactivity [Recovered/Resolved]
